FAERS Safety Report 5445444-4 (Version None)
Quarter: 2007Q3

REPORT INFORMATION
  Report Type: 
  Country: None (occurrence: None)
  Receive Date: 20070906
  Receipt Date: 20070827
  Transmission Date: 20080115
  Serious: Yes (Death, Hospitalization)
  Sender: FDA-Public Use
  Company Number: DE-PFIZER INC-2007071802

PATIENT
  Sex: Male
  Weight: 95 kg

DRUGS (9)
  1. SUTENT [Suspect]
     Indication: METASTATIC RENAL CELL CARCINOMA
     Route: 048
  2. DUROGESIC [Concomitant]
  3. LACTULOSE [Concomitant]
  4. MOVICOL [Concomitant]
  5. AMITRIPTYLINE HCL [Concomitant]
  6. PANTOPRAZOLE SODIUM [Concomitant]
  7. SAB SIMPLEX [Concomitant]
  8. NAPROXEN [Concomitant]
  9. FRAXIPARIN [Concomitant]

REACTIONS (9)
  - CARDIAC FAILURE [None]
  - ENCEPHALITIC INFECTION [None]
  - ILEUS [None]
  - LEUKOPENIA [None]
  - LUMBAR VERTEBRAL FRACTURE [None]
  - PLEURAL EFFUSION [None]
  - PNEUMONIA [None]
  - PULMONARY EMBOLISM [None]
  - SEPTIC SHOCK [None]
